FAERS Safety Report 6986855-5 (Version None)
Quarter: 2010Q3

REPORT INFORMATION
  Report Type: 
  Country: None (occurrence: None)
  Receive Date: 20100915
  Receipt Date: 20090818
  Transmission Date: 20110219
  Serious: No
  Sender: FDA-Public Use
  Company Number: US-WYE-H10637709

PATIENT
  Sex: Female
  Weight: 86.26 kg

DRUGS (4)
  1. PRISTIQ [Suspect]
     Indication: DEPRESSION
     Route: 048
     Dates: start: 20090811
  2. ABILIFY [Suspect]
     Dosage: 2 MG, FREQUENCY UNSPECIFIED
     Route: 065
  3. TRAZODONE HCL [Concomitant]
  4. WELLBUTRIN [Suspect]
     Dosage: 100 MG, FREQUENCY UNSPECIFIED
     Route: 065

REACTIONS (1)
  - HYPERHIDROSIS [None]
